FAERS Safety Report 20599789 (Version 1)
Quarter: 2022Q1

REPORT INFORMATION
  Report Type: Spontaneous
  Country: US (occurrence: US)
  Receive Date: 20220316
  Receipt Date: 20220316
  Transmission Date: 20220423
  Serious: Yes (Other)
  Sender: FDA-Public Use
  Company Number: US-NOVOPROD-900302

PATIENT
  Sex: Female

DRUGS (2)
  1. OZEMPIC [Suspect]
     Active Substance: SEMAGLUTIDE
     Indication: Dyspnoea
     Dosage: 0.5 MG, QW
     Route: 058
  2. OZEMPIC [Suspect]
     Active Substance: SEMAGLUTIDE
     Indication: Glucose tolerance impaired
     Dosage: UNK
     Route: 058
     Dates: start: 202109

REACTIONS (13)
  - Head and neck cancer [Unknown]
  - Cardiac failure [Unknown]
  - Syncope [Unknown]
  - Pain in extremity [Recovered/Resolved]
  - Eye disorder [Unknown]
  - Road traffic accident [Not Recovered/Not Resolved]
  - Walking aid user [Not Recovered/Not Resolved]
  - Fear of injection [Unknown]
  - Weight increased [Unknown]
  - Vomiting [Recovered/Resolved]
  - Nausea [Recovered/Resolved]
  - Dyspepsia [Recovered/Resolved]
  - Product use in unapproved indication [Not Recovered/Not Resolved]

NARRATIVE: CASE EVENT DATE: 20210901
